FAERS Safety Report 7426106-0 (Version None)
Quarter: 2011Q2

REPORT INFORMATION
  Report Type: 
  Country: None (occurrence: None)
  Receive Date: 20110412
  Receipt Date: 20110405
  Transmission Date: 20111010
  Serious: Yes (Death)
  Sender: FDA-Public Use
  Company Number: DSA_44224_2010

PATIENT
  Sex: Female

DRUGS (8)
  1. SINGULAIR [Concomitant]
  2. VITRUM [Concomitant]
  3. XENAZINE [Suspect]
     Indication: TARDIVE DYSKINESIA
     Dosage: (12.5 MG QD ORAL), (12.5 MG BID ORAL), (12.4 MG TID ORAL), (DF)
     Route: 048
     Dates: start: 20100301
  4. XENAZINE [Suspect]
     Indication: TARDIVE DYSKINESIA
     Dosage: (12.5 MG QD ORAL), (12.5 MG BID ORAL), (12.4 MG TID ORAL), (DF)
     Route: 048
     Dates: start: 20091217
  5. SYNTHROID [Concomitant]
  6. VISTARIL /00058402/ [Concomitant]
  7. ZYPREXA [Concomitant]
  8. MIRTAZAPINE [Concomitant]

REACTIONS (2)
  - DECREASED APPETITE [None]
  - NAUSEA [None]
